FAERS Safety Report 10744658 (Version 1)
Quarter: 2015Q1

REPORT INFORMATION
  Report Type: Spontaneous
  Country: US (occurrence: US)
  Receive Date: 20150128
  Receipt Date: 20150128
  Transmission Date: 20150721
  Serious: Yes (Hospitalization, Other)
  Sender: FDA-Public Use
  Company Number: US-AMGEN-USASL2015005403

PATIENT
  Age: 74 Year
  Sex: Female

DRUGS (4)
  1. PROLIA [Suspect]
     Active Substance: DENOSUMAB
     Indication: OSTEOPOROSIS POSTMENOPAUSAL
     Dosage: UNK
     Route: 065
     Dates: start: 201402
  2. CALCIUM [Concomitant]
     Active Substance: CALCIUM
  3. NEXIUM [Concomitant]
     Active Substance: ESOMEPRAZOLE MAGNESIUM
  4. VITAMIN D                          /00107901/ [Concomitant]
     Active Substance: ERGOCALCIFEROL

REACTIONS (8)
  - Arthritis [Unknown]
  - Compression fracture [Unknown]
  - Herpes zoster [Unknown]
  - Sleep disorder due to a general medical condition [Unknown]
  - Pancreatitis [Unknown]
  - Staphylococcal infection [Unknown]
  - Post procedural infection [Unknown]
  - Back pain [Unknown]

NARRATIVE: CASE EVENT DATE: 2014
